FAERS Safety Report 4906693-4 (Version None)
Quarter: 2006Q1

REPORT INFORMATION
  Report Type: 
  Country: None (occurrence: None)
  Receive Date: 20060206
  Receipt Date: 20060124
  Transmission Date: 20060701
  Serious: Yes (Death, Hospitalization)
  Sender: FDA-Public Use
  Company Number: 221432

PATIENT
  Sex: Male
  Weight: 93.5 kg

DRUGS (3)
  1. AVASTIN(BEVACIZUMAB) PWDR + SOLVENT,INFUSION SOLN, 100MG [Suspect]
     Indication: PANCREATIC CARCINOMA
     Dosage: 930 MG
     Dates: start: 20060110, end: 20060110
  2. GEMCITABINE (GEMCITABINE HYDROCHLORIDE) [Suspect]
     Indication: PANCREATIC CARCINOMA
     Dosage: 1000 MG/M2, DAYS 1+15
     Dates: start: 20060110, end: 20060110
  3. OXALIPLATIN (OXALIPLATIN) [Suspect]
     Indication: PANCREATIC CARCINOMA
     Dosage: 100 MG/M2
     Dates: start: 20060110, end: 20060110

REACTIONS (12)
  - ANOREXIA [None]
  - ASCITES [None]
  - BLOOD CALCIUM DECREASED [None]
  - BLOOD CREATININE INCREASED [None]
  - DEHYDRATION [None]
  - DIARRHOEA [None]
  - DISEASE PROGRESSION [None]
  - METASTATIC NEOPLASM [None]
  - RESPIRATORY ARREST [None]
  - SEPSIS [None]
  - SMALL INTESTINAL PERFORATION [None]
  - TUMOUR PERFORATION [None]
